FAERS Safety Report 22070167 (Version 4)
Quarter: 2023Q2

REPORT INFORMATION
  Report Type: Spontaneous
  Country: US (occurrence: US)
  Receive Date: 20230307
  Receipt Date: 20230425
  Transmission Date: 20230722
  Serious: No
  Sender: FDA-Public Use
  Company Number: US-PFIZER INC-PV202300040635

PATIENT
  Age: 57 Year
  Sex: Female
  Weight: 70.295 kg

DRUGS (4)
  1. GENOTROPIN [Suspect]
     Active Substance: SOMATROPIN
     Indication: Hormone replacement therapy
     Dosage: 0.2 MG
     Dates: start: 202302
  2. GENOTROPIN [Suspect]
     Active Substance: SOMATROPIN
     Dosage: 0.5 MG, DAILY (FOR 10 DAYS)
     Dates: start: 20230209, end: 20230219
  3. GENOTROPIN [Suspect]
     Active Substance: SOMATROPIN
     Dosage: 0.5 MG, DAILY (FOR 8 DAYS)
     Dates: start: 20230221, end: 20230228
  4. GENOTROPIN [Suspect]
     Active Substance: SOMATROPIN
     Dosage: 0.2 MG, DAILY
     Dates: start: 20230310

REACTIONS (4)
  - Accidental overdose [Unknown]
  - Device issue [Unknown]
  - Product dose omission issue [Unknown]
  - Product communication issue [Unknown]

NARRATIVE: CASE EVENT DATE: 20230209
